FAERS Safety Report 16607337 (Version 3)
Quarter: 2020Q1

REPORT INFORMATION
  Report Type: Spontaneous
  Country: US (occurrence: US)
  Receive Date: 20190722
  Receipt Date: 20200120
  Transmission Date: 20200409
  Serious: No
  Sender: FDA-Public Use
  Company Number: US-INSMED, INC.-US-INS-19-01839

PATIENT
  Age: 84 Year
  Sex: Female
  Weight: 33.6 kg

DRUGS (2)
  1. LAMIRA NEBULIZER SYSTEM [Suspect]
     Active Substance: DEVICE
  2. ARIKAYCE [Suspect]
     Active Substance: AMIKACIN
     Indication: MYCOBACTERIAL INFECTION
     Route: 055
     Dates: start: 20190517, end: 20190903

REACTIONS (4)
  - Intentional product misuse [Unknown]
  - Haemoptysis [Unknown]
  - Epistaxis [Unknown]
  - Productive cough [Unknown]

NARRATIVE: CASE EVENT DATE: 2019
